FAERS Safety Report 6820137-7 (Version None)
Quarter: 2010Q3

REPORT INFORMATION
  Report Type: 
  Country: None (occurrence: None)
  Receive Date: 20100707
  Receipt Date: 20100629
  Transmission Date: 20110219
  Serious: Yes (Hospitalization)
  Sender: FDA-Public Use
  Company Number: FR-MERCK-1006FRA00085

PATIENT
  Age: 69 Year
  Sex: Male

DRUGS (5)
  1. JANUVIA [Suspect]
     Indication: TYPE 2 DIABETES MELLITUS
     Route: 048
     Dates: start: 20080708, end: 20080801
  2. JANUVIA [Suspect]
     Route: 048
     Dates: start: 20081001, end: 20090101
  3. METFORMIN [Concomitant]
     Indication: TYPE 2 DIABETES MELLITUS
     Route: 048
     Dates: start: 20060201
  4. IRBESARTAN [Concomitant]
     Indication: HYPERTENSION
     Route: 048
     Dates: start: 20030201
  5. ASPIRIN LYSINE [Concomitant]
     Indication: PLATELET AGGREGATION INHIBITION
     Route: 048
     Dates: start: 20011001

REACTIONS (4)
  - NEPHROLITHIASIS [None]
  - PROSTATIC SPECIFIC ANTIGEN INCREASED [None]
  - RENAL COLIC [None]
  - SEPSIS [None]
